FAERS Safety Report 16167065 (Version 1)
Quarter: 2019Q2

REPORT INFORMATION
  Report Type: Spontaneous
  Country: US (occurrence: US)
  Receive Date: 20190408
  Receipt Date: 20190408
  Transmission Date: 20190711
  Serious: Yes (Other)
  Sender: FDA-Public Use
  Company Number: US-ROCHE-2293510

PATIENT
  Sex: Female
  Weight: 93.07 kg

DRUGS (6)
  1. OCREVUS [Suspect]
     Active Substance: OCRELIZUMAB
     Indication: RELAPSING-REMITTING MULTIPLE SCLEROSIS
     Dosage: GIVEN 2 WEEKS APART
     Route: 042
     Dates: start: 201706, end: 201707
  2. TYSABRI [Concomitant]
     Active Substance: NATALIZUMAB
  3. GILENYA [Concomitant]
     Active Substance: FINGOLIMOD HYDROCHLORIDE
  4. COPAXONE [Concomitant]
     Active Substance: GLATIRAMER ACETATE
     Route: 065
  5. OCREVUS [Suspect]
     Active Substance: OCRELIZUMAB
     Route: 042
     Dates: start: 201712
  6. OCREVUS [Suspect]
     Active Substance: OCRELIZUMAB
     Route: 042
     Dates: start: 201812

REACTIONS (6)
  - Multiple sclerosis relapse [Unknown]
  - Muscle disorder [Unknown]
  - Vision blurred [Not Recovered/Not Resolved]
  - Drug ineffective [Unknown]
  - Hypersensitivity [Not Recovered/Not Resolved]
  - Motion sickness [Not Recovered/Not Resolved]

NARRATIVE: CASE EVENT DATE: 2018
